FAERS Safety Report 10682611 (Version 1)
Quarter: 2014Q4

REPORT INFORMATION
  Report Type: Spontaneous
  Country: US (occurrence: None)
  Receive Date: 20141209
  Receipt Date: 20141209
  Transmission Date: 20150529
  Serious: Yes (Other)
  Sender: FDA-Public Use
  Company Number: 397613

PATIENT
  Age: 24 Year
  Sex: Female
  Weight: 72.6 kg

DRUGS (5)
  1. LISINOPRIL. [Concomitant]
     Active Substance: LISINOPRIL
  2. GLUCAGON EMERGENCY KIT [Concomitant]
  3. LANTUS [Concomitant]
     Active Substance: INSULIN GLARGINE
  4. NOVOLOG [Suspect]
     Active Substance: INSULIN ASPART
     Indication: TYPE 1 DIABETES MELLITUS
     Dosage: UP TO 100 UNITS QD, SLIDING SCALE, SUBCUTAN-PUMP
  5. MICROGESTIN FE [Concomitant]
     Active Substance: ETHINYL ESTRADIOL\FERROUS FUMARATE\NORETHINDRONE ACETATE

REACTIONS (4)
  - Blood glucose increased [None]
  - Hypoglycaemia [None]
  - Weight increased [None]
  - Product quality issue [None]

NARRATIVE: CASE EVENT DATE: 20140107
